FAERS Safety Report 6263455-6 (Version None)
Quarter: 2009Q3

REPORT INFORMATION
  Report Type: 
  Country: None (occurrence: None)
  Receive Date: 20090710
  Receipt Date: 20090617
  Transmission Date: 20100115
  Serious: No
  Sender: FDA-Public Use
  Company Number: A0772790A

PATIENT
  Age: 84 Year
  Sex: Female

DRUGS (5)
  1. FLOVENT [Suspect]
     Indication: ASTHMA
     Dosage: 1SPR AS REQUIRED
     Route: 055
  2. SYNTHROID [Concomitant]
  3. ZESTRIL [Concomitant]
  4. KLONOPIN [Concomitant]
  5. FLOVENT [Concomitant]

REACTIONS (4)
  - BRONCHITIS [None]
  - DRUG INEFFECTIVE [None]
  - MUSCLE SPASMS [None]
  - PRODUCT QUALITY ISSUE [None]
